FAERS Safety Report 14421910 (Version 3)
Quarter: 2018Q2

REPORT INFORMATION
  Report Type: Report from Study
  Country: None (occurrence: US)
  Receive Date: 20180122
  Receipt Date: 20180409
  Transmission Date: 20180711
  Serious: Yes (Other)
  Sender: FDA-Public Use
  Company Number: US-ABBVIE-17K-163-2106239-00

PATIENT
  Age: 58 Year
  Sex: Female

DRUGS (1)
  1. HUMIRA [Suspect]
     Active Substance: ADALIMUMAB
     Indication: RHEUMATOID ARTHRITIS
     Route: 058

REACTIONS (23)
  - Joint lock [Unknown]
  - Fall [Unknown]
  - Pain in extremity [Unknown]
  - Abdominal discomfort [Unknown]
  - Peripheral swelling [Unknown]
  - Arthralgia [Unknown]
  - Gait disturbance [Unknown]
  - Hypoaesthesia [Unknown]
  - Oropharyngeal discomfort [Unknown]
  - Epistaxis [Unknown]
  - Balance disorder [Unknown]
  - Systemic lupus erythematosus [Unknown]
  - Joint swelling [Unknown]
  - Sensory loss [Unknown]
  - Drug ineffective [Unknown]
  - Back pain [Unknown]
  - Head injury [Unknown]
  - Limb mass [Unknown]
  - Dysstasia [Unknown]
  - Dysphagia [Unknown]
  - Anaemia [Unknown]
  - Feeling abnormal [Unknown]
  - Tremor [Unknown]

NARRATIVE: CASE EVENT DATE: 201801
